FAERS Safety Report 23329577 (Version 1)
Quarter: 2023Q4

REPORT INFORMATION
  Report Type: Spontaneous
  Country: US (occurrence: US)
  Receive Date: 20231222
  Receipt Date: 20231222
  Transmission Date: 20240110
  Serious: No
  Sender: FDA-Public Use
  Company Number: US-AMGEN-USASP2023226391

PATIENT
  Sex: Female

DRUGS (10)
  1. OTEZLA [Suspect]
     Active Substance: APREMILAST
     Indication: Product used for unknown indication
     Route: 065
  2. HUMIRA [Concomitant]
     Active Substance: ADALIMUMAB
  3. CLOBETASOL [Concomitant]
     Active Substance: CLOBETASOL
  4. SELENIUM SULFIDE [Concomitant]
     Active Substance: SELENIUM SULFIDE
  5. MOMETASONE [Concomitant]
     Active Substance: MOMETASONE
  6. FLUOCINONIDE [Concomitant]
     Active Substance: FLUOCINONIDE
  7. HYDROCORTISONE [Concomitant]
     Active Substance: HYDROCORTISONE
  8. DESOXIMETASONE [Concomitant]
     Active Substance: DESOXIMETASONE
  9. TRIAMCINOLONE [Concomitant]
     Active Substance: TRIAMCINOLONE
  10. DERMA-SMOOTHE/FS [Concomitant]
     Active Substance: FLUOCINOLONE ACETONIDE

REACTIONS (5)
  - Adverse drug reaction [Unknown]
  - Thoracic insufficiency syndrome [Unknown]
  - Sensitive skin [Unknown]
  - Pain [Unknown]
  - Pruritus [Unknown]

NARRATIVE: CASE EVENT DATE: 20170101
